FAERS Safety Report 20328429 (Version 1)
Quarter: 2022Q1

REPORT INFORMATION
  Report Type: Spontaneous
  Country: US (occurrence: US)
  Receive Date: 20220112
  Receipt Date: 20220112
  Transmission Date: 20220423
  Serious: No
  Sender: FDA-Public Use
  Company Number: US-GW PHARMA-202201USGW00082

PATIENT

DRUGS (1)
  1. EPIDIOLEX [Suspect]
     Active Substance: CANNABIDIOL
     Indication: Epilepsy
     Dosage: 30 MILLIGRAM, BID (NEW RX OF INCREASED DOSE)
     Route: 048

REACTIONS (2)
  - Seizure [Unknown]
  - Product use in unapproved indication [Unknown]
